FAERS Safety Report 5738973-7 (Version None)
Quarter: 2008Q2

REPORT INFORMATION
  Report Type: 
  Country: None (occurrence: None)
  Receive Date: 20080515
  Receipt Date: 20080508
  Transmission Date: 20081010
  Serious: Yes (Hospitalization)
  Sender: FDA-Public Use
  Company Number: CH-ASTRAZENECA-2008PK00976

PATIENT
  Age: 59 Year
  Sex: Male

DRUGS (11)
  1. NEXIUM [Suspect]
     Route: 048
     Dates: start: 20080313, end: 20080408
  2. NEXIUM [Suspect]
     Route: 048
     Dates: start: 20080412, end: 20080413
  3. MIDAZOLAM HCL [Concomitant]
     Route: 042
     Dates: start: 20080304, end: 20080304
  4. ZINACEF [Concomitant]
     Route: 042
     Dates: start: 20080304, end: 20080304
  5. PROPOFOL [Concomitant]
     Route: 042
     Dates: start: 20080304, end: 20080304
  6. ENOXAPARIN SODIUM [Concomitant]
     Route: 058
     Dates: start: 20080304, end: 20080404
  7. PRIMPERAN TAB [Concomitant]
     Route: 048
     Dates: start: 20080304, end: 20080408
  8. METAMIZOLE SODIUM [Concomitant]
     Route: 048
     Dates: start: 20080303, end: 20080404
  9. DAFALGAN [Concomitant]
     Route: 048
     Dates: start: 20080304, end: 20080408
  10. TRANEXAMIN [Concomitant]
     Route: 048
     Dates: start: 20080304, end: 20080408
  11. PRAMIPEXOLE DIHYDROCHLORIDE [Concomitant]
     Indication: RESTLESS LEGS SYNDROME
     Route: 048

REACTIONS (1)
  - HEPATITIS CHOLESTATIC [None]
